FAERS Safety Report 4690134-9 (Version None)
Quarter: 2005Q2

REPORT INFORMATION
  Report Type: 
  Country: None (occurrence: None)
  Receive Date: 20050613
  Receipt Date: 20050526
  Transmission Date: 20051028
  Serious: Yes (Other)
  Sender: FDA-Public Use
  Company Number: DSA_26547_2005

PATIENT
  Sex: Male

DRUGS (6)
  1. DILTIAZEM [Suspect]
     Indication: PAIN
     Dosage: 90 MG BID PO
     Route: 048
     Dates: start: 20050415
  2. ASPIRIN [Concomitant]
  3. ATENOLOL [Concomitant]
  4. ATORVASTATIN CALCIUM [Concomitant]
  5. RAMIPRIL [Concomitant]
  6. NITROGLYCERIN [Concomitant]

REACTIONS (3)
  - BRADYARRHYTHMIA [None]
  - FATIGUE [None]
  - MALAISE [None]
